FAERS Safety Report 10172422 (Version 4)
Quarter: 2015Q4

REPORT INFORMATION
  Report Type: Spontaneous
  Country: US (occurrence: US)
  Receive Date: 20140515
  Receipt Date: 20151218
  Transmission Date: 20160304
  Serious: Yes (Hospitalization, Other)
  Sender: FDA-Public Use
  Company Number: US-BAYER-2014-071395

PATIENT
  Age: 26 Year
  Sex: Female
  Weight: 91 kg

DRUGS (7)
  1. YASMIN [Suspect]
     Active Substance: DROSPIRENONE\ETHINYL ESTRADIOL
     Dosage: UNK
     Dates: start: 200203
  2. TYLENOL [Concomitant]
     Active Substance: ACETAMINOPHEN
  3. LORTAB [Concomitant]
     Active Substance: ACETAMINOPHEN\HYDROCODONE BITARTRATE
  4. LOMOTIL [DIPHENOXYLATE HYDROCHLORIDE] [Concomitant]
  5. MOTRIN [Concomitant]
     Active Substance: IBUPROFEN
  6. PHENERGAN [Concomitant]
     Active Substance: PROMETHAZINE HYDROCHLORIDE
  7. HYDROCODONE [Concomitant]
     Active Substance: HYDROCODONE

REACTIONS (6)
  - Injury [None]
  - Embolism arterial [None]
  - Vasculitis [None]
  - Peripheral arterial occlusive disease [None]
  - Thrombosis [None]
  - Pain [None]

NARRATIVE: CASE EVENT DATE: 200203
